FAERS Safety Report 8687613 (Version 4)
Quarter: 2012Q4

REPORT INFORMATION
  Report Type: 
  Country: DE (occurrence: DE)
  Receive Date: 20120727
  Receipt Date: 20121004
  Transmission Date: 20130627
  Serious: Yes (Life-Threatening, Hospitalization, Disabling, Other)
  Sender: FDA-Public Use
  Company Number: DE-MSD-1207DEU009265

PATIENT
  Age: 46 Year
  Sex: Female

DRUGS (4)
  1. JANUMET [Suspect]
     Indication: TYPE 2 DIABETES MELLITUS
     Dosage: 50mg/850mg, bid
     Route: 048
     Dates: start: 20111028, end: 20111121
  2. SIMVASTATIN [Concomitant]
     Indication: HYPERLIPIDAEMIA
     Dosage: 20 mg, qd
     Route: 048
     Dates: start: 201107, end: 20111027
  3. SIMVASTATIN [Concomitant]
     Dosage: 40 mg, qd
     Route: 048
     Dates: start: 20111028, end: 20111121
  4. METFORMIN [Concomitant]
     Indication: TYPE 2 DIABETES MELLITUS
     Dosage: 1000 mg, bid
     Route: 048
     Dates: end: 20111028

REACTIONS (7)
  - Renal failure acute [Recovered/Resolved]
  - Bradycardia [Unknown]
  - Pneumonia [Unknown]
  - Rhabdomyolysis [Recovering/Resolving]
  - Dyspnoea [Recovering/Resolving]
  - Hyperkalaemia [Recovering/Resolving]
  - Lactic acidosis [Recovered/Resolved]
